FAERS Safety Report 5227486-7 (Version None)
Quarter: 2007Q1

REPORT INFORMATION
  Report Type: 
  Country: None (occurrence: None)
  Receive Date: 20070202
  Receipt Date: 20070122
  Transmission Date: 20070707
  Serious: Yes (Other)
  Sender: FDA-Public Use
  Company Number: PHNU2007DE00616

PATIENT
  Age: 52 Year
  Sex: Female

DRUGS (2)
  1. FEMARA [Suspect]
     Indication: BREAST CANCER RECURRENT
     Dosage: 2.5 MG, QD
     Route: 048
     Dates: start: 20040201
  2. ZOLADEX [Suspect]
     Route: 065
     Dates: start: 20020101, end: 20040101

REACTIONS (6)
  - BACK PAIN [None]
  - BONE DENSITY DECREASED [None]
  - CARCINOEMBRYONIC ANTIGEN INCREASED [None]
  - LYMPHADENOPATHY [None]
  - OSTEOPENIA [None]
  - ULTRASOUND THYROID ABNORMAL [None]
